FAERS Safety Report 14667711 (Version 2)
Quarter: 2018Q2

REPORT INFORMATION
  Report Type: Spontaneous
  Country: US (occurrence: US)
  Receive Date: 20180322
  Receipt Date: 20180430
  Transmission Date: 20180711
  Serious: No
  Sender: FDA-Public Use
  Company Number: US-PFIZER INC-2018112754

PATIENT
  Age: 40 Year
  Sex: Female

DRUGS (1)
  1. XELJANZ XR [Suspect]
     Active Substance: TOFACITINIB CITRATE
     Dosage: 11 MG, DAILY
     Dates: start: 201709

REACTIONS (10)
  - Condition aggravated [Unknown]
  - Back pain [Unknown]
  - Oral pain [Unknown]
  - Drug ineffective [Unknown]
  - Hyperaesthesia [Unknown]
  - Arthralgia [Unknown]
  - Epistaxis [Unknown]
  - Paraesthesia [Unknown]
  - Pain in extremity [Unknown]
  - Nasal disorder [Unknown]
